FAERS Safety Report 24964010 (Version 2)
Quarter: 2025Q1

REPORT INFORMATION
  Report Type: Spontaneous
  Country: AZ (occurrence: AZ)
  Receive Date: 20250213
  Receipt Date: 20250219
  Transmission Date: 20250408
  Serious: Yes (Life-Threatening, Hospitalization, Other)
  Sender: BAXTER
  Company Number: AZ-BAXTER-2025BAX011281

PATIENT
  Age: 53 Year
  Sex: Male

DRUGS (1)
  1. CYCLOPHOSPHAMIDE [Suspect]
     Active Substance: CYCLOPHOSPHAMIDE
     Indication: Acute leukaemia
     Route: 042
     Dates: start: 20250121, end: 20250121

REACTIONS (3)
  - Oxygen saturation decreased [Recovered/Resolved]
  - Anaphylactic reaction [Recovered/Resolved]
  - Blood pressure decreased [Recovered/Resolved]

NARRATIVE: CASE EVENT DATE: 20250121
